FAERS Safety Report 20017441 (Version 1)
Quarter: 2021Q4

REPORT INFORMATION
  Report Type: Spontaneous
  Country: ES (occurrence: ES)
  Receive Date: 20211030
  Receipt Date: 20211030
  Transmission Date: 20220304
  Serious: Yes (Other)
  Sender: FDA-Public Use
  Company Number: None

PATIENT
  Age: 68 Year
  Sex: Male

DRUGS (12)
  1. PEMETREXED [Suspect]
     Active Substance: PEMETREXED
     Dosage: 825MILLIGRAM
     Route: 042
     Dates: start: 20210203
  2. KEYTRUDA [Suspect]
     Active Substance: PEMBROLIZUMAB
     Dosage: 200MILLIGRAM
     Route: 042
     Dates: start: 20210203, end: 20210226
  3. CISPLATIN [Suspect]
     Active Substance: CISPLATIN
     Dosage: 124MILLIGRAM
     Route: 042
     Dates: start: 20210203, end: 20210226
  4. METAMIZOL [Concomitant]
     Active Substance: METAMIZOLE SODIUM
     Dosage: FORMSTRENGTH:0.4 G/ ML :UNIT DOSE:2GRAMSOLUCION INYECTABLE Y PARA PERFUSION EFG 5 5 ML AMPOULES
     Route: 048
     Dates: start: 20210112
  5. LAVENTAIR [Concomitant]
     Dosage: FORMSTRENGTH:ELLIPTA 55 MICROGRAMOS/22 MICROGRAMOS POLVO PARA INHALACION (UNIDOSIS), 1 INHALADOR DE
     Route: 055
     Dates: start: 20201130
  6. ZOLICO [Concomitant]
     Dosage: 400 TABLETS MICROGRAMS, 28 TABLETS:UNIT DOSE:400MILLIGRAM
     Route: 048
     Dates: start: 20210112
  7. CROMATONBIC B12 [Concomitant]
     Dosage: UNIT DOSE:1000MICROGRAM:1000 INJECTABLE, 8 AMPOULES OF 1 ML
     Route: 030
     Dates: start: 20210112
  8. PRIMPERAN [Concomitant]
     Active Substance: METOCLOPRAMIDE HYDROCHLORIDE
     Dosage: 1 BOTTLE OF 200 ML:UNIT DOSE:10ML
     Route: 048
     Dates: start: 20210219
  9. PREGABALINS DURAS [Concomitant]
     Dosage: 50MILLIGRAM:EFG, 56 CAPSULES (BLISTER ALUMINUM / PVC-PVDC 60)
     Route: 048
     Dates: start: 20201219
  10. PARACETAMOL KERN PHARMA [Concomitant]
     Dosage: 1000MILLIGRAM:PHARMA , 40 TABLETS
     Route: 048
     Dates: start: 20201130
  11. FENTANILO MATRIX NORMON [Concomitant]
     Dosage: PATCHES EFG, 5 PATCHES:UNIT DOSE:25MICROGRAM
     Route: 062
     Dates: start: 20210121
  12. MORPHINE [Concomitant]
     Active Substance: MORPHINE
     Dosage: 10MILLIGRAM:12 TABLETS
     Route: 048
     Dates: start: 20210121

REACTIONS (1)
  - Hepatitis acute [Recovering/Resolving]

NARRATIVE: CASE EVENT DATE: 20210318
